FAERS Safety Report 4671287-5 (Version None)
Quarter: 2005Q2

REPORT INFORMATION
  Report Type: 
  Country: None (occurrence: None)
  Receive Date: 20050523
  Receipt Date: 20050506
  Transmission Date: 20051028
  Serious: Yes (Disabling)
  Sender: FDA-Public Use
  Company Number: MEDI-0003414

PATIENT
  Age: 3 Month
  Sex: Female

DRUGS (8)
  1. SYNAGIS [Suspect]
     Indication: ANTIVIRAL PROPHYLAXIS
     Dosage: SEE IMAGE
     Route: 030
     Dates: start: 20031110, end: 20031110
  2. SYNAGIS [Suspect]
     Indication: ANTIVIRAL PROPHYLAXIS
     Dosage: SEE IMAGE
     Route: 030
     Dates: start: 20031208
  3. SYNAGIS [Suspect]
     Indication: ANTIVIRAL PROPHYLAXIS
     Dosage: SEE IMAGE
     Route: 030
     Dates: start: 20040106
  4. SYNAGIS [Suspect]
     Indication: ANTIVIRAL PROPHYLAXIS
     Dosage: SEE IMAGE
     Route: 030
     Dates: start: 20040202
  5. FERRIC PYROPHOSPHATE (FERRIC PYROPHOSPHATE) [Concomitant]
  6. ALFACALCIDOL (ALFACALCIDOL) [Concomitant]
  7. DIBASIC CALCIUM PHOSPHATE (CALCIUM PHOSPHATE DIBASIC) [Concomitant]
  8. CALCIUM LACTATE  (CALCIUM LACTATE) [Concomitant]

REACTIONS (1)
  - PERIVENTRICULAR LEUKOMALACIA [None]
